FAERS Safety Report 5764605-8 (Version None)
Quarter: 2008Q2

REPORT INFORMATION
  Report Type: 
  Country: None (occurrence: None)
  Receive Date: 20080611
  Receipt Date: 20080527
  Transmission Date: 20081010
  Serious: No
  Sender: FDA-Public Use
  Company Number: US-BAYER-200812006BCC

PATIENT
  Sex: Female
  Weight: 51 kg

DRUGS (6)
  1. ONE-A-DAY WOMEN'S 50 + ADVANTAGE [Suspect]
     Indication: VITAMIN SUPPLEMENTATION
     Route: 048
     Dates: start: 20080418, end: 20080418
  2. ASPIRIN [Suspect]
     Indication: DRUG USE FOR UNKNOWN INDICATION
     Dosage: TOTAL DAILY DOSE: 81 MG  UNIT DOSE: 81 MG
     Route: 048
  3. ALEVE [Suspect]
     Indication: ARTHRALGIA
     Dosage: TOTAL DAILY DOSE: 220 MG  UNIT DOSE: 220 MG
     Route: 048
  4. STRESSTAB [Concomitant]
  5. FISH OIL [Concomitant]
  6. GLUCOSAMINE [Concomitant]

REACTIONS (6)
  - CHEST PAIN [None]
  - EYE INFLAMMATION [None]
  - EYE PAIN [None]
  - EYELID DISORDER [None]
  - THROAT IRRITATION [None]
  - UNEVALUABLE EVENT [None]
